FAERS Safety Report 6582318-X (Version None)
Quarter: 2010Q1

REPORT INFORMATION
  Report Type: 
  Country: None (occurrence: None)
  Receive Date: 20100216
  Receipt Date: 20100205
  Transmission Date: 20100710
  Serious: Yes (Life-Threatening, Hospitalization)
  Sender: FDA-Public Use
  Company Number: FR-KINGPHARMUSA00001-K201000138

PATIENT
  Age: 85 Year
  Sex: Female

DRUGS (9)
  1. ALTACE [Suspect]
     Indication: HYPERTENSION
     Dosage: 5 MG, QD
     Route: 048
  2. SPIRONOLACTONE [Suspect]
     Indication: OEDEMA
     Dosage: 50 MG, BID
     Route: 048
     Dates: start: 20060101, end: 20080828
  3. MIRTAZAPINE [Concomitant]
     Dosage: UNK
  4. OMEP [Concomitant]
     Dosage: UNK
     Dates: start: 20080301
  5. ASS [Concomitant]
     Dosage: UNK
  6. METHIZOL [Concomitant]
     Dosage: UNK
     Dates: end: 20080828
  7. TOREM [Concomitant]
     Dosage: UNK
     Dates: end: 20080828
  8. PENTAERYTHRITOL TETRANITRATE [Concomitant]
     Dosage: UNK
  9. TRAMADOL [Concomitant]
     Dosage: UNK

REACTIONS (4)
  - BRADYCARDIA [None]
  - FATIGUE [None]
  - HYPERKALAEMIA [None]
  - MALAISE [None]
